FAERS Safety Report 6660786-2 (Version None)
Quarter: 2010Q1

REPORT INFORMATION
  Report Type: 
  Country: None (occurrence: None)
  Receive Date: 20100331
  Receipt Date: 20100304
  Transmission Date: 20100710
  Serious: Yes (Hospitalization)
  Sender: FDA-Public Use
  Company Number: US-ASTRAZENECA-2010SE09381

PATIENT
  Age: 56 Year
  Sex: Male

DRUGS (17)
  1. CRESTOR [Suspect]
     Indication: DYSLIPIDAEMIA
     Route: 048
  2. ZETIA [Concomitant]
  3. AMLODIPINE BESYLATE [Concomitant]
  4. ANDROGEL [Concomitant]
     Dosage: 50 MG/ 5 GM,APPLY EACH ARM,  DAILY
  5. OXANDRIN [Concomitant]
  6. SULFACETAMIDE SODIUM SOLUTION [Concomitant]
  7. PROMETHAZINE HCL [Concomitant]
  8. DEPO-TESTOSTERONE OIL [Concomitant]
     Dosage: 200 MG/ML, DAILY
  9. KALETRA [Concomitant]
     Dosage: 200-50 MG, DAILY
  10. DOXAZOSIN MESYLATE [Concomitant]
  11. ZIAGEN [Concomitant]
  12. CEPHALEXIN [Concomitant]
  13. GABAPENTIN [Concomitant]
  14. ISENTRESS [Concomitant]
  15. VICODEN EF [Concomitant]
     Dosage: 7.5 - 750 MG
  16. SERTRALINE HCL [Concomitant]
  17. HEMORRHOIDAL HC [Concomitant]

REACTIONS (1)
  - RENAL FAILURE [None]
